FAERS Safety Report 4954420-7 (Version None)
Quarter: 2006Q1

REPORT INFORMATION
  Report Type: 
  Country: None (occurrence: None)
  Receive Date: 20060322
  Receipt Date: 20060309
  Transmission Date: 20060701
  Serious: Yes (Hospitalization, Other)
  Sender: FDA-Public Use
  Company Number: TCI2005A04982

PATIENT
  Age: 84 Year
  Sex: Female

DRUGS (6)
  1. ACTOS [Suspect]
     Indication: DIABETES MELLITUS NON-INSULIN-DEPENDENT
     Dosage: PER ORAL
     Route: 048
     Dates: end: 20051201
  2. URSO (URSOEDEOXYCHOLIC ACID) [Concomitant]
  3. ASPIRIN [Concomitant]
  4. ALFACALCIDOL (ALFACALCIDOL) [Concomitant]
  5. NILVADIPINE [Concomitant]
  6. BONALON (ALENDRONIC ACID) [Concomitant]

REACTIONS (4)
  - CARDIOMEGALY [None]
  - DYSPNOEA EXERTIONAL [None]
  - OEDEMA PERIPHERAL [None]
  - PERICARDIAL EFFUSION [None]
